FAERS Safety Report 9995550 (Version 4)
Quarter: 2014Q2

REPORT INFORMATION
  Report Type: Spontaneous
  Country: DE (occurrence: DE)
  Receive Date: 20140311
  Receipt Date: 20140418
  Transmission Date: 20141212
  Serious: Yes (Disabling, Other)
  Sender: FDA-Public Use
  Company Number: DE-OTSUKA-EU-2014-10072

PATIENT
  Age: 52 Year
  Sex: Male

DRUGS (6)
  1. SAMSCA [Suspect]
     Indication: PRODUCT USED FOR UNKNOWN INDICATION
     Dosage: 15 MG MILLIGRAM(S), SINGLE
     Route: 048
     Dates: start: 20121227, end: 20121227
  2. STEROFUNDIN B [Concomitant]
     Dosage: UNK UNKNOWN, UNKNOWN
     Route: 065
     Dates: start: 20121226
  3. KALIUM [Concomitant]
     Dosage: UNK, UNKNOWN
     Route: 065
     Dates: start: 20121226
  4. BISOPROLOL [Concomitant]
     Dosage: 05 MG MILLIGRAM(S), DAILY DOSE
     Route: 048
     Dates: start: 20121226
  5. NORADRENALINE [Concomitant]
     Dosage: 0.1 UG/KG/MIN, UNKNOWN
     Route: 065
     Dates: start: 20121226
  6. GLUCOSE [Concomitant]
     Dosage: UNK, UNKNOWN
     Route: 065
     Dates: start: 20121226

REACTIONS (4)
  - Osmotic demyelination syndrome [Not Recovered/Not Resolved]
  - Altered state of consciousness [Recovered/Resolved]
  - Rapid correction of hyponatraemia [Unknown]
  - Ataxia [Not Recovered/Not Resolved]
